FAERS Safety Report 6011132-9 (Version None)
Quarter: 2008Q4

REPORT INFORMATION
  Report Type: 
  Country: None (occurrence: None)
  Receive Date: 20081216
  Receipt Date: 20081207
  Transmission Date: 20090506
  Serious: Yes (Other)
  Sender: FDA-Public Use
  Company Number: CHPA2008US21799

PATIENT
  Age: 50 Year
  Sex: Male

DRUGS (3)
  1. THERAFLU DAYTIME SEVERE COLD NO PSE CAPLET (NCH) (PARACETAMOL, DEXTROM [Suspect]
     Indication: OROPHARYNGEAL PAIN
     Dosage: 2 DF, QD, ORAL; 2 DF, THE MORNING, ORAL; 1 DF, IN THE EVENING, ORAL
     Route: 048
     Dates: start: 20081205, end: 20081205
  2. THERAFLU DAYTIME SEVERE COLD NO PSE CAPLET (NCH) (PARACETAMOL, DEXTROM [Suspect]
     Indication: OROPHARYNGEAL PAIN
     Dosage: 2 DF, QD, ORAL; 2 DF, THE MORNING, ORAL; 1 DF, IN THE EVENING, ORAL
     Route: 048
     Dates: start: 20071206, end: 20081206
  3. THERAFLU DAYTIME SEVERE COLD NO PSE CAPLET (NCH) (PARACETAMOL, DEXTROM [Suspect]
     Indication: OROPHARYNGEAL PAIN
     Dosage: 2 DF, QD, ORAL; 2 DF, THE MORNING, ORAL; 1 DF, IN THE EVENING, ORAL
     Route: 048
     Dates: start: 20081206, end: 20081206

REACTIONS (5)
  - CHEST PAIN [None]
  - DIZZINESS [None]
  - DYSKINESIA [None]
  - NERVOUSNESS [None]
  - TREMOR [None]
